FAERS Safety Report 8059530-6 (Version None)
Quarter: 2012Q1

REPORT INFORMATION
  Report Type: 
  Country: None (occurrence: None)
  Receive Date: 20120120
  Receipt Date: 20120112
  Transmission Date: 20120608
  Serious: Yes (Hospitalization)
  Sender: FDA-Public Use
  Company Number: US-ROCHE-1031835

PATIENT
  Sex: Male
  Weight: 47.7 kg

DRUGS (1)
  1. XELODA [Suspect]
     Indication: HEAD AND NECK CANCER
     Dates: start: 20111027

REACTIONS (2)
  - FISTULA [None]
  - IMPAIRED HEALING [None]
